FAERS Safety Report 14185343 (Version 2)
Quarter: 2017Q4

REPORT INFORMATION
  Report Type: Spontaneous
  Country: US (occurrence: JP)
  Receive Date: 20171114
  Receipt Date: 20171122
  Transmission Date: 20180321
  Serious: Yes (Other)
  Sender: FDA-Public Use
  Company Number: US-SUNOVION-2017SUN004900

PATIENT
  Age: 81 Year
  Sex: Male

DRUGS (2)
  1. INDACATEROL [Suspect]
     Active Substance: INDACATEROL
     Indication: DYSPNOEA
     Dosage: UNK
     Route: 055
  2. OXYGEN. [Concomitant]
     Active Substance: OXYGEN

REACTIONS (5)
  - Epilepsy [Unknown]
  - Tremor [Unknown]
  - Product use in unapproved indication [Unknown]
  - Metastases to central nervous system [Unknown]
  - Blood potassium decreased [Unknown]
